FAERS Safety Report 12926695 (Version 2)
Quarter: 2016Q4

REPORT INFORMATION
  Report Type: Report from Study
  Country: US (occurrence: US)
  Receive Date: 20161108
  Receipt Date: 20161220
  Transmission Date: 20170207
  Serious: Yes (Hospitalization, Other)
  Sender: FDA-Public Use
  Company Number: US-MALLINCKRODT-T201605473

PATIENT
  Age: 20 Year
  Sex: Male

DRUGS (1)
  1. REPOSITORY CORTICOTROPIN INJECTION [Suspect]
     Active Substance: CORTICOTROPIN
     Indication: IGA NEPHROPATHY
     Dosage: 80U/1ML 2X/WEEK (WED. AND SAT.)
     Route: 058
     Dates: start: 20160622, end: 2016

REACTIONS (11)
  - Pyrexia [Recovered/Resolved]
  - Haematemesis [Not Recovered/Not Resolved]
  - Blood creatinine increased [Not Recovered/Not Resolved]
  - Influenza like illness [Recovering/Resolving]
  - Thrombosis in device [Recovered/Resolved]
  - Blood pressure systolic increased [Not Recovered/Not Resolved]
  - Kidney infection [Recovered/Resolved]
  - Sepsis [Recovering/Resolving]
  - Headache [Not Recovered/Not Resolved]
  - Haemoglobin decreased [Recovered/Resolved]
  - Staphylococcal infection [Not Recovered/Not Resolved]

NARRATIVE: CASE EVENT DATE: 20161011
